FAERS Safety Report 4335067-2 (Version None)
Quarter: 2004Q2

REPORT INFORMATION
  Report Type: 
  Country: None (occurrence: None)
  Receive Date: 20040408
  Receipt Date: 20030808
  Transmission Date: 20050107
  Serious: No
  Sender: FDA-Public Use
  Company Number: US-GLAXOSMITHKLINE-A0420306A

PATIENT
  Age: 60 Year
  Sex: Male

DRUGS (3)
  1. SEREVENT [Suspect]
     Indication: ASTHMA
     Route: 055
     Dates: start: 20030806
  2. ACCOLATE [Concomitant]
  3. PRILOSEC [Concomitant]

REACTIONS (1)
  - DYSPNOEA [None]
